FAERS Safety Report 21654862 (Version 1)
Quarter: 2022Q4

REPORT INFORMATION
  Report Type: Spontaneous
  Country: US (occurrence: US)
  Receive Date: 20221129
  Receipt Date: 20221129
  Transmission Date: 20230112
  Serious: No
  Sender: FDA-Public Use
  Company Number: US-SECURA BIO, INC.-2022-SECUR-US000053

PATIENT

DRUGS (1)
  1. COPIKTRA [Suspect]
     Active Substance: DUVELISIB
     Indication: Waldenstrom^s macroglobulinaemia
     Dosage: 25 MG
     Route: 048
     Dates: start: 20220415, end: 20220531

REACTIONS (3)
  - Stomatitis [Unknown]
  - Diarrhoea [Unknown]
  - Product use in unapproved indication [Unknown]
